FAERS Safety Report 9028712 (Version 1)
Quarter: 2013Q1

REPORT INFORMATION
  Report Type: Report from Study
  Country: ZA (occurrence: ZA)
  Receive Date: 20130124
  Receipt Date: 20130124
  Transmission Date: 20140127
  Serious: Yes (Death, Hospitalization)
  Sender: FDA-Public Use
  Company Number: ZA-CELGENEUS-143-50794-13012058

PATIENT
  Age: 40 Year
  Sex: Female
  Weight: 51.5 kg

DRUGS (11)
  1. VIDAZA [Suspect]
     Indication: MYELODYSPLASTIC SYNDROME
     Route: 065
  2. REVLIMID [Suspect]
     Indication: MYELODYSPLASTIC SYNDROME
     Route: 048
  3. TAMOXIFEN [Concomitant]
     Indication: BREAST CANCER
     Dosage: 20 MILLIGRAM
     Route: 048
     Dates: start: 20120521
  4. FOLIC ACID [Concomitant]
     Indication: SUPPLEMENTATION THERAPY
     Dosage: 5 MILLIGRAM
     Route: 048
     Dates: start: 20120509
  5. DOLOROL FORTE [Concomitant]
     Indication: PAIN
     Dosage: 6 TABLET
     Route: 048
     Dates: start: 20120509
  6. ZOFRAN [Concomitant]
     Indication: NAUSEA
     Dosage: 4 MILLIGRAM
     Route: 048
     Dates: start: 20120614
  7. MAXOLON [Concomitant]
     Indication: NAUSEA
     Dosage: 30 MILLIGRAM
     Route: 048
     Dates: start: 20120615
  8. MAXOLON [Concomitant]
     Indication: VOMITING
  9. BACTRIM [Concomitant]
     Indication: INFLAMMATION
     Route: 065
     Dates: start: 20120719
  10. PYRIDOXINE [Concomitant]
     Indication: PROPHYLAXIS
     Dosage: 25 MILLIGRAM
     Route: 048
     Dates: start: 20120802
  11. NUR ISTERATE [Concomitant]
     Indication: CONTRACEPTION
     Dosage: 3.3333 MILLIGRAM
     Route: 065
     Dates: start: 20120913

REACTIONS (1)
  - Lower respiratory tract infection [Fatal]
